FAERS Safety Report 12297684 (Version 1)
Quarter: 2016Q2

REPORT INFORMATION
  Report Type: Spontaneous
  Country: US (occurrence: US)
  Receive Date: 20160422
  Receipt Date: 20160422
  Transmission Date: 20160815
  Serious: Yes (Other)
  Sender: FDA-Public Use
  Company Number: US-BIOMARINAP-US-2016-109534

PATIENT
  Sex: Male
  Weight: 16.6 kg

DRUGS (1)
  1. VIMIZIM [Suspect]
     Active Substance: ELOSULFASE ALFA
     Indication: MUCOPOLYSACCHARIDOSIS IV
     Dosage: 33 MG, QW
     Route: 042
     Dates: start: 20141001

REACTIONS (2)
  - Spinal cord compression [Not Recovered/Not Resolved]
  - Muscle spasticity [Not Recovered/Not Resolved]
